FAERS Safety Report 18151398 (Version 1)
Quarter: 2020Q3

REPORT INFORMATION
  Report Type: Report from Study
  Country: CA (occurrence: CA)
  Receive Date: 20200814
  Receipt Date: 20200814
  Transmission Date: 20201103
  Serious: Yes (Death, Hospitalization, Other)
  Sender: FDA-Public Use
  Company Number: CA-MYLANLABS-2020M1059270

PATIENT
  Sex: Female
  Weight: 124.26 kg

DRUGS (21)
  1. CALCIUM CARBONATE. [Suspect]
     Active Substance: CALCIUM CARBONATE
     Indication: PRODUCT USED FOR UNKNOWN INDICATION
     Dosage: UNK
     Dates: start: 20191107
  2. TRIHEXYPHENIDYL HCL [Suspect]
     Active Substance: TRIHEXYPHENIDYL HYDROCHLORIDE
     Indication: PRODUCT USED FOR UNKNOWN INDICATION
     Dosage: 0.5 TAB TWO TIMES DAILY
     Route: 048
     Dates: start: 20200525
  3. CLOZAPINE. [Suspect]
     Active Substance: CLOZAPINE
     Dosage: 100 MG( 1 TAB EVERY DAY AT BEDTIME)
     Route: 048
     Dates: start: 20200525
  4. CLONAZEPAM. [Suspect]
     Active Substance: CLONAZEPAM
     Indication: PRODUCT USED FOR UNKNOWN INDICATION
     Dosage: UNK
     Route: 048
     Dates: start: 20200525
  5. EPIVAL                             /00017001/ [Suspect]
     Active Substance: DIAZEPAM
     Indication: PRODUCT USED FOR UNKNOWN INDICATION
     Dosage: 4 TABS EVERY DAY AT BEDTIME
     Dates: start: 20200525
  6. ACETAMINOPHEN. [Suspect]
     Active Substance: ACETAMINOPHEN
     Indication: PRODUCT USED FOR UNKNOWN INDICATION
     Dosage: UNK
     Route: 048
     Dates: start: 20191107
  7. VITAMIN D                          /00107901/ [Suspect]
     Active Substance: ERGOCALCIFEROL
     Indication: PRODUCT USED FOR UNKNOWN INDICATION
     Dosage: UNK
     Dates: start: 20191107
  8. PANTOPRAZOLE [Suspect]
     Active Substance: PANTOPRAZOLE
     Indication: PRODUCT USED FOR UNKNOWN INDICATION
     Dosage: UNK
     Route: 048
     Dates: start: 20150313
  9. ASMANEX [Suspect]
     Active Substance: MOMETASONE FUROATE
     Indication: PRODUCT USED FOR UNKNOWN INDICATION
     Dosage: UNK
     Dates: start: 20191107
  10. VENTOLIN HFA [Suspect]
     Active Substance: ALBUTEROL SULFATE
     Indication: PRODUCT USED FOR UNKNOWN INDICATION
     Dosage: UNK
     Dates: start: 20191001
  11. ATORVASTATIN [Suspect]
     Active Substance: ATORVASTATIN
     Indication: PRODUCT USED FOR UNKNOWN INDICATION
     Dosage: UNK
     Dates: start: 20160107
  12. CLOZAPINE. [Suspect]
     Active Substance: CLOZAPINE
     Dosage: 200 MG (2 TAB EVERY DAY AT BEDTIME)
     Route: 048
     Dates: start: 20200525
  13. GABAPENTIN. [Suspect]
     Active Substance: GABAPENTIN
     Indication: PRODUCT USED FOR UNKNOWN INDICATION
     Dosage: 1 CAPSULE 2 TIMES DIALY
     Route: 048
     Dates: start: 20200525
  14. CHAMPIX [Suspect]
     Active Substance: VARENICLINE TARTRATE
     Indication: PRODUCT USED FOR UNKNOWN INDICATION
     Dosage: 1 TAB TWO TIMES DAILY
     Dates: start: 20200402
  15. CLOZAPINE. [Suspect]
     Active Substance: CLOZAPINE
     Dosage: 25 MG (1 TABS EVERY DAY AT BEDTIME)
     Route: 048
     Dates: start: 20200525
  16. CHAMPIX [Suspect]
     Active Substance: VARENICLINE TARTRATE
     Dosage: DAY 1?3
     Dates: start: 20200402
  17. CHAMPIX [Suspect]
     Active Substance: VARENICLINE TARTRATE
     Dosage: DAY 4?7
     Dates: start: 20200402
  18. METFORMIN HCL [Suspect]
     Active Substance: METFORMIN HYDROCHLORIDE
     Indication: PRODUCT USED FOR UNKNOWN INDICATION
     Dosage: UNK
     Route: 048
     Dates: start: 20160509
  19. CLOZAPINE. [Suspect]
     Active Substance: CLOZAPINE
     Indication: SCHIZOAFFECTIVE DISORDER
     Dosage: UNK
     Dates: start: 201906
  20. VENLAFAXINE HCL [Suspect]
     Active Substance: VENLAFAXINE HYDROCHLORIDE
     Indication: PRODUCT USED FOR UNKNOWN INDICATION
     Dosage: 2 CAPSULE EVERY MORNING
     Route: 048
     Dates: start: 20200525
  21. INSPIOLTO RESPIMAT [Suspect]
     Active Substance: OLODATEROL HYDROCHLORIDE\TIOTROPIUM BROMIDE MONOHYDRATE
     Indication: PRODUCT USED FOR UNKNOWN INDICATION
     Dosage: UNK
     Dates: start: 20191107

REACTIONS (2)
  - Off label use [Unknown]
  - Mental disorder [Fatal]
